FAERS Safety Report 23125636 (Version 1)
Quarter: 2023Q4

REPORT INFORMATION
  Report Type: Spontaneous
  Country: US (occurrence: None)
  Receive Date: 20231030
  Receipt Date: 20231030
  Transmission Date: 20240109
  Serious: Yes (Other)
  Sender: FDA-Public Use
  Company Number: None

PATIENT
  Age: 69 Year
  Sex: Female

DRUGS (10)
  1. DUPIXENT [Suspect]
     Active Substance: DUPILUMAB
     Indication: Asthma
     Dates: start: 20220325, end: 202310
  2. ADVAIR HF [Concomitant]
  3. ALBUTEROL SULFATE [Concomitant]
     Active Substance: ALBUTEROL SULFATE
  4. SPIRIVA RESPIMAT 1.25MG [Concomitant]
  5. LOSARTAN 100MG [Concomitant]
  6. TRELEGY [Concomitant]
  7. ATORVASTATIN 10MG [Concomitant]
  8. METOPROLOL SUCCINATE 50MG [Concomitant]
  9. TAFLUPROST [Concomitant]
     Active Substance: TAFLUPROST
  10. HYDROCHLOROTHIAZIDE 25MG [Concomitant]

REACTIONS (2)
  - Acne [None]
  - Vision blurred [None]

NARRATIVE: CASE EVENT DATE: 20230901
